FAERS Safety Report 20532771 (Version 6)
Quarter: 2023Q2

REPORT INFORMATION
  Report Type: Spontaneous
  Country: US (occurrence: US)
  Receive Date: 20220301
  Receipt Date: 20230512
  Transmission Date: 20230721
  Serious: Yes (Hospitalization, Disabling, Other)
  Sender: FDA-Public Use
  Company Number: US-ORGANON-O2202USA002288

PATIENT
  Sex: Female

DRUGS (2)
  1. SINGULAIR [Suspect]
     Active Substance: MONTELUKAST SODIUM
     Indication: Hypersensitivity
     Dosage: UNK
     Route: 048
     Dates: start: 20020405, end: 2016
  2. SINGULAIR [Suspect]
     Active Substance: MONTELUKAST SODIUM
     Indication: Hypersensitivity
     Dosage: TAKE 1 TABLET BY ORAL ROUTE EVERY DAY IN THE EVENING
     Route: 048
     Dates: start: 20151218, end: 2016

REACTIONS (16)
  - Neuropsychiatric symptoms [Not Recovered/Not Resolved]
  - Cholecystectomy [Unknown]
  - Major depression [Recovering/Resolving]
  - Bipolar disorder [Unknown]
  - Binge eating [Unknown]
  - Intentional self-injury [Unknown]
  - Generalised anxiety disorder [Recovering/Resolving]
  - Suicidal ideation [Recovered/Resolved]
  - Aggression [Recovered/Resolved]
  - Hypersomnia [Recovering/Resolving]
  - Disturbance in attention [Unknown]
  - Attention deficit hyperactivity disorder [Unknown]
  - Fear of death [Unknown]
  - Dermatillomania [Not Recovered/Not Resolved]
  - Heart rate increased [Unknown]
  - Panic disorder [Unknown]

NARRATIVE: CASE EVENT DATE: 20020101
